FAERS Safety Report 24133987 (Version 1)
Quarter: 2024Q3

REPORT INFORMATION
  Report Type: Spontaneous
  Country: GB (occurrence: GB)
  Receive Date: 20240724
  Receipt Date: 20240724
  Transmission Date: 20241016
  Serious: Yes (Disabling)
  Sender: LUNDBECK
  Company Number: None

PATIENT

DRUGS (1)
  1. EPTINEZUMAB [Suspect]
     Active Substance: EPTINEZUMAB
     Indication: Product used for unknown indication
     Dosage: 100 003
     Route: 041
     Dates: start: 20240712

REACTIONS (1)
  - Vertigo [Recovering/Resolving]

NARRATIVE: CASE EVENT DATE: 20240712
